FAERS Safety Report 23196780 (Version 3)
Quarter: 2024Q1

REPORT INFORMATION
  Report Type: Report from Study
  Country: FR (occurrence: None)
  Receive Date: 20231117
  Receipt Date: 20240119
  Transmission Date: 20240410
  Serious: Yes (Other)
  Sender: FDA-Public Use
  Company Number: 2023A256416

PATIENT
  Sex: Female
  Weight: 63 kg

DRUGS (17)
  1. IMFINZI [Suspect]
     Active Substance: DURVALUMAB
     Indication: Biliary cancer metastatic
     Route: 042
     Dates: start: 20230208, end: 20230328
  2. IMFINZI [Suspect]
     Active Substance: DURVALUMAB
     Indication: Biliary cancer metastatic
     Route: 042
     Dates: start: 20230301, end: 20230301
  3. IMFINZI [Suspect]
     Active Substance: DURVALUMAB
     Indication: Biliary cancer metastatic
     Route: 042
     Dates: start: 20230328, end: 20230328
  4. IMFINZI [Suspect]
     Active Substance: DURVALUMAB
     Indication: Biliary cancer metastatic
     Route: 042
     Dates: start: 20230517
  5. IMFINZI [Suspect]
     Active Substance: DURVALUMAB
     Indication: Biliary cancer metastatic
     Route: 042
     Dates: start: 20230809
  6. IMFINZI [Suspect]
     Active Substance: DURVALUMAB
     Indication: Biliary cancer metastatic
     Dosage: 1500.0MG ONCE/SINGLE ADMINISTRATION
     Route: 042
     Dates: start: 20231011, end: 20231011
  7. IMFINZI [Suspect]
     Active Substance: DURVALUMAB
     Indication: Biliary cancer metastatic
     Dosage: 1500.0MG ONCE/SINGLE ADMINISTRATION
     Route: 042
     Dates: start: 20231106
  8. GEMCITABINE [Concomitant]
     Active Substance: GEMCITABINE
     Indication: Biliary cancer metastatic
     Dates: start: 20230208
  9. GEMCITABINE [Concomitant]
     Active Substance: GEMCITABINE
     Indication: Biliary cancer metastatic
     Dates: start: 20230301
  10. GEMCITABINE [Concomitant]
     Active Substance: GEMCITABINE
     Indication: Biliary cancer metastatic
     Dates: start: 20230328
  11. GEMCITABINE [Concomitant]
     Active Substance: GEMCITABINE
     Indication: Biliary cancer metastatic
     Dates: start: 20230517
  12. GEMCITABINE [Concomitant]
     Active Substance: GEMCITABINE
     Indication: Biliary cancer metastatic
     Dates: start: 20230704
  13. CISPLATIN [Concomitant]
     Active Substance: CISPLATIN
     Indication: Biliary cancer metastatic
     Dates: start: 20230208
  14. CISPLATIN [Concomitant]
     Active Substance: CISPLATIN
     Indication: Biliary cancer metastatic
     Dates: start: 20230301
  15. CISPLATIN [Concomitant]
     Active Substance: CISPLATIN
     Indication: Biliary cancer metastatic
     Dates: start: 20230328
  16. CISPLATIN [Concomitant]
     Active Substance: CISPLATIN
     Indication: Biliary cancer metastatic
     Dates: start: 20230517
  17. CISPLATIN [Concomitant]
     Active Substance: CISPLATIN
     Indication: Biliary cancer metastatic
     Dates: start: 20230704

REACTIONS (4)
  - Angioedema [Unknown]
  - Adverse event [Unknown]
  - Dermatitis [Unknown]
  - Flushing [Unknown]
